FAERS Safety Report 20375597 (Version 1)
Quarter: 2022Q1

REPORT INFORMATION
  Report Type: Spontaneous
  Country: US (occurrence: None)
  Receive Date: 20220124
  Receipt Date: 20220124
  Transmission Date: 20220424
  Serious: Yes (Other)
  Sender: FDA-Public Use
  Company Number: None

PATIENT
  Age: 66 Year
  Sex: Female
  Weight: 47.63 kg

DRUGS (2)
  1. PIQRAY [Suspect]
     Active Substance: ALPELISIB
     Dosage: BID ORAL
     Route: 048
     Dates: start: 20211122, end: 20220116
  2. PIQRAY [Concomitant]
     Active Substance: ALPELISIB
     Dates: start: 20211122, end: 20220116

REACTIONS (3)
  - Blood glucose increased [None]
  - Seizure [None]
  - Therapy cessation [None]

NARRATIVE: CASE EVENT DATE: 20211225
